FAERS Safety Report 10617920 (Version 1)
Quarter: 2014Q4

REPORT INFORMATION
  Report Type: Spontaneous
  Country: RU (occurrence: RU)
  Receive Date: 20141201
  Receipt Date: 20141201
  Transmission Date: 20150529
  Serious: Yes (Other)
  Sender: FDA-Public Use
  Company Number: RU-ASTRAZENECA-2014SE88213

PATIENT
  Sex: Female

DRUGS (1)
  1. EMLA [Suspect]
     Active Substance: LIDOCAINE\PRILOCAINE
     Route: 061

REACTIONS (4)
  - Ocular hyperaemia [Unknown]
  - Dyspnoea [Unknown]
  - Tachycardia [Unknown]
  - Dizziness [Unknown]
